FAERS Safety Report 9228066 (Version 1)
Quarter: 2013Q2

REPORT INFORMATION
  Report Type: Spontaneous
  Country: US (occurrence: US)
  Receive Date: 20130412
  Receipt Date: 20130412
  Transmission Date: 20140414
  Serious: Yes (Hospitalization)
  Sender: FDA-Public Use
  Company Number: US-TARO-2013P1004441

PATIENT
  Age: 80 Year
  Sex: Male
  Weight: 61.4 kg

DRUGS (2)
  1. WARFARIN SODIUM TABLETS USP 5MG [Suspect]
     Route: 048
  2. WARFARIN SODIUM TABLETS USP 5MG [Suspect]
     Indication: ATRIAL FIBRILLATION
     Route: 048

REACTIONS (9)
  - Confusional state [Unknown]
  - Haematuria [Unknown]
  - Haemoptysis [Unknown]
  - Epistaxis [Unknown]
  - Renal failure acute [Unknown]
  - Coagulopathy [Unknown]
  - Anaemia [Unknown]
  - International normalised ratio increased [Unknown]
  - Product quality issue [None]
